FAERS Safety Report 16224238 (Version 1)
Quarter: 2019Q2

REPORT INFORMATION
  Report Type: Spontaneous
  Country: FR (occurrence: FR)
  Receive Date: 20190422
  Receipt Date: 20190422
  Transmission Date: 20190711
  Serious: Yes (Other)
  Sender: FDA-Public Use
  Company Number: FR-PROVELL PHARMACEUTICALS-2066106

PATIENT
  Age: 44 Year
  Sex: Female

DRUGS (1)
  1. EUTHYROX [Suspect]
     Active Substance: LEVOTHYROXINE SODIUM
     Indication: POST PROCEDURAL HYPOTHYROIDISM
     Dates: start: 201811

REACTIONS (4)
  - Anxiety [Unknown]
  - Depression [Unknown]
  - Orthostatic hypertension [Unknown]
  - Crying [Unknown]

NARRATIVE: CASE EVENT DATE: 201812
